FAERS Safety Report 4735250-8 (Version None)
Quarter: 2005Q3

REPORT INFORMATION
  Report Type: 
  Country: None (occurrence: None)
  Receive Date: 20050802
  Receipt Date: 20050622
  Transmission Date: 20060218
  Serious: Yes (Disabling, Other)
  Sender: FDA-Public Use
  Company Number: 200511157BWH

PATIENT
  Age: 50 Year
  Sex: Male
  Weight: 92.9874 kg

DRUGS (7)
  1. LEVITRA [Suspect]
     Indication: ERECTILE DYSFUNCTION
     Dosage: 10 MG, TOTAL DAILY, ORAL
     Route: 048
     Dates: start: 20040501
  2. LIPITOR [Concomitant]
  3. PLAVIX [Concomitant]
  4. ATENOLOL [Concomitant]
  5. ACCUPRIL [Concomitant]
  6. ASPIRIN [Concomitant]
  7. FOLIC ACID [Concomitant]

REACTIONS (8)
  - ISCHAEMIA [None]
  - OPTIC ATROPHY [None]
  - OPTIC ISCHAEMIC NEUROPATHY [None]
  - OPTIC NERVE DISORDER [None]
  - OPTIC NEURITIS [None]
  - PAPILLOEDEMA [None]
  - VISUAL ACUITY REDUCED [None]
  - VISUAL FIELD DEFECT [None]
